FAERS Safety Report 5376562-7 (Version None)
Quarter: 2007Q2

REPORT INFORMATION
  Report Type: 
  Country: None (occurrence: None)
  Receive Date: 20070629
  Receipt Date: 20070614
  Transmission Date: 20071010
  Serious: Yes (Hospitalization)
  Sender: FDA-Public Use
  Company Number: DSA_29726_2007

PATIENT
  Sex: Female

DRUGS (5)
  1. MONOTILDIEM (MONO-TILDIEM) (NOT SPECIFIED) [Suspect]
     Indication: HYPERTENSION
     Dosage: 200 MG QD ORAL
     Route: 048
     Dates: start: 20061204, end: 20070305
  2. INDAPAMIDE [Concomitant]
  3. EPROSARTAN [Concomitant]
  4. LEVOTHYROXINE SODIUM [Concomitant]
  5. STABLON [Concomitant]

REACTIONS (2)
  - GASTROINTESTINAL DISORDER [None]
  - HEPATITIS [None]
